FAERS Safety Report 10266353 (Version 1)
Quarter: 2014Q2

REPORT INFORMATION
  Report Type: Spontaneous
  Country: US (occurrence: US)
  Receive Date: 20140628
  Receipt Date: 20140628
  Transmission Date: 20141212
  Serious: No
  Sender: FDA-Public Use
  Company Number: US-009507513-1406USA008614

PATIENT
  Age: 22 Year
  Sex: Female
  Weight: 59.86 kg

DRUGS (2)
  1. NEXPLANON [Suspect]
     Indication: CONTRACEPTION
     Dosage: DOSE/FREQUENCY-68 MG/ONE ROD, INSERTED EVERY THREE YEARS
     Route: 059
     Dates: start: 20140528
  2. IRON (UNSPECIFIED) (+) MINERALS (UNSPECIFIED) (+) VITAMINS (UNSPECIFI [Concomitant]

REACTIONS (4)
  - Oropharyngeal pain [Not Recovered/Not Resolved]
  - Headache [Not Recovered/Not Resolved]
  - Abdominal pain [Not Recovered/Not Resolved]
  - Muscle spasms [Not Recovered/Not Resolved]
